FAERS Safety Report 13980555 (Version 1)
Quarter: 2017Q3

REPORT INFORMATION
  Report Type: Spontaneous
  Country: US (occurrence: US)
  Receive Date: 20170918
  Receipt Date: 20170918
  Transmission Date: 20171128
  Serious: Yes (Hospitalization, Other)
  Sender: FDA-Public Use
  Company Number: US-AUROBINDO-AUR-APL-2017-40535

PATIENT
  Age: 76 Year
  Sex: Female

DRUGS (2)
  1. FLUCONAZOLE. [Suspect]
     Active Substance: FLUCONAZOLE
     Indication: OSTEOMYELITIS FUNGAL
     Dosage: 400 MG, DAILY
     Route: 048
  2. SIMVASTATIN. [Suspect]
     Active Substance: SIMVASTATIN
     Indication: OSTEOMYELITIS FUNGAL
     Dosage: 20 MG, DAILY
     Route: 065

REACTIONS (6)
  - Chromaturia [Unknown]
  - Drug interaction [Recovered/Resolved]
  - Muscular weakness [Recovering/Resolving]
  - Acute kidney injury [Recovered/Resolved]
  - Pain in extremity [Recovering/Resolving]
  - Rhabdomyolysis [Recovered/Resolved]
